FAERS Safety Report 7673679 (Version 2)
Quarter: 2014Q1

REPORT INFORMATION
  Report Type: Spontaneous
  Country: US (occurrence: US)
  Receive Date: 20101118
  Receipt Date: 20140203
  Transmission Date: 20141002
  Serious: Yes (Other)
  Sender: FDA-Public Use
  Company Number: US-BAYER-201041608NA

PATIENT
  Age: 32 Year
  Sex: Female

DRUGS (5)
  1. YASMIN [Suspect]
  2. YAZ [Suspect]
  3. LAMICTAL [Concomitant]
     Dosage: 100 MG, UNK
     Dates: start: 20070316
  4. ZOLOFT [Concomitant]
     Dosage: 100 MG, UNK
     Dates: start: 20070306
  5. SEROQUEL [Concomitant]
     Dosage: 300 MG, UNK
     Dates: start: 20070306

REACTIONS (5)
  - Deep vein thrombosis [Unknown]
  - Gallbladder non-functioning [Unknown]
  - Pulmonary embolism [Unknown]
  - Injury [Unknown]
  - Cholelithiasis [None]
